FAERS Safety Report 7243407-X (Version None)
Quarter: 2011Q1

REPORT INFORMATION
  Report Type: 
  Country: None (occurrence: None)
  Receive Date: 20110125
  Receipt Date: 20110112
  Transmission Date: 20110831
  Serious: Yes (Death, Hospitalization, Other)
  Sender: FDA-Public Use
  Company Number: US-ELI_LILLY_AND_COMPANY-US201011002987

PATIENT
  Sex: Female
  Weight: 86.621 kg

DRUGS (5)
  1. ALIMTA [Suspect]
     Indication: PANCOAST'S TUMOUR
     Dosage: 500 MG/M2, UNKNOWN
     Route: 042
     Dates: start: 20100817
  2. VITAMIN B-12 [Concomitant]
     Dates: start: 20100803
  3. FOLIC ACID [Concomitant]
     Dates: start: 20100803
  4. CISPLATIN [Concomitant]
     Indication: NON-SMALL CELL LUNG CANCER
     Dosage: UNK, UNKNOWN
     Route: 065
  5. DEXAMETHASONE [Concomitant]
     Dates: start: 20100817

REACTIONS (5)
  - RENAL FAILURE [None]
  - PANCYTOPENIA [None]
  - SEPSIS [None]
  - NEUTROPENIA [None]
  - DEATH [None]
